FAERS Safety Report 25884120 (Version 1)
Quarter: 2025Q4

REPORT INFORMATION
  Report Type: Spontaneous
  Country: RU (occurrence: RU)
  Receive Date: 20251006
  Receipt Date: 20251006
  Transmission Date: 20260118
  Serious: Yes (Other)
  Sender: BAYER HEALTHCARE PHARMACEUTICALS INC.
  Company Number: RU-BAYER-2025A129281

PATIENT
  Age: 29 Year
  Sex: Female

DRUGS (2)
  1. DROSPIRENONE\ETHINYL ESTRADIOL\LEVOMEFOLATE CALCIUM [Suspect]
     Active Substance: DROSPIRENONE\ETHINYL ESTRADIOL\LEVOMEFOLATE CALCIUM
     Indication: Acne
     Dosage: UNK
     Route: 048
  2. VITAMINS [Concomitant]
     Active Substance: VITAMINS

REACTIONS (7)
  - Deep vein thrombosis [None]
  - Pulmonary embolism [None]
  - Osteochondrosis [None]
  - Pain in extremity [None]
  - Hypercoagulation [None]
  - Fibroadenoma of breast [None]
  - Papilloma viral infection [None]

NARRATIVE: CASE EVENT DATE: 20250701
